FAERS Safety Report 8846267 (Version 2)
Quarter: 2012Q4

REPORT INFORMATION
  Report Type: 
  Country: BR (occurrence: BR)
  Receive Date: 20121018
  Receipt Date: 20121105
  Transmission Date: 20130627
  Serious: Yes (Hospitalization, Other)
  Sender: FDA-Public Use
  Company Number: BR-AMGEN-BRASP2012065727

PATIENT
  Age: 55 Year
  Sex: Female
  Weight: 79 kg

DRUGS (9)
  1. ENBREL [Suspect]
     Indication: RHEUMATOID ARTHRITIS
     Dosage: 50 mg, once weekly
     Route: 058
     Dates: start: 20110914
  2. PRELONE                            /00016201/ [Concomitant]
     Indication: RHEUMATOID ARTHRITIS
     Dosage: 10 mg, 1x/day
     Dates: start: 2002
  3. OXCARBAZEPINE [Concomitant]
     Indication: EPILEPSY
     Dosage: 300 mg, 2x/day
  4. ALPRAZOLAM [Concomitant]
     Indication: SLEEP DISORDER
     Dosage: 1 mg, 1x/day
     Dates: start: 2007
  5. ARADOIS H [Concomitant]
     Indication: HYPERTENSION
     Dosage: 100 mg, 1x/day
     Dates: start: 2011
  6. MANIVASC [Concomitant]
     Indication: HYPERTENSION
     Dosage: 10 mg, 2x/day (1 tablet in the morning and 1 tablet at night)
     Dates: start: 2011
  7. DEPASAN [Concomitant]
     Indication: DEPRESSION
     Dosage: 1 tablet (20 mg), 1x/day
  8. OXCORD [Concomitant]
     Indication: CONVULSION
     Dosage: 2 tablets (30 mg each) a day
     Dates: start: 2007
  9. XARELTO [Concomitant]
     Indication: ANTICOAGULANT THERAPY
     Dosage: 1 tablet a day
     Dates: start: 201210

REACTIONS (5)
  - Arrhythmia [Unknown]
  - Diabetes mellitus [Unknown]
  - Heart rate increased [Unknown]
  - Malaise [Unknown]
  - Pain [Unknown]
